FAERS Safety Report 12895874 (Version 1)
Quarter: 2016Q4

REPORT INFORMATION
  Report Type: Spontaneous
  Country: US (occurrence: US)
  Receive Date: 20161031
  Receipt Date: 20161031
  Transmission Date: 20170207
  Serious: No
  Sender: FDA-Public Use
  Company Number: US-JNJFOC-20160926265

PATIENT
  Sex: Female
  Weight: 123.38 kg

DRUGS (1)
  1. INVOKANA [Suspect]
     Active Substance: CANAGLIFLOZIN
     Indication: TYPE 2 DIABETES MELLITUS
     Route: 048
     Dates: start: 20150120, end: 20160902

REACTIONS (2)
  - Vulvovaginal mycotic infection [Recovered/Resolved]
  - Glycosuria [Unknown]
